FAERS Safety Report 6271031-4 (Version None)
Quarter: 2009Q3

REPORT INFORMATION
  Report Type: 
  Country: None (occurrence: None)
  Receive Date: 20090716
  Receipt Date: 20090706
  Transmission Date: 20100115
  Serious: Yes (Hospitalization)
  Sender: FDA-Public Use
  Company Number: IE-ELI_LILLY_AND_COMPANY-IE200907001991

PATIENT
  Age: 86 Year
  Sex: Female

DRUGS (2)
  1. ZYPREXA [Suspect]
     Indication: INSOMNIA
     Dosage: 15 MG, UNK
  2. HALCION [Concomitant]
     Indication: SLEEP DISORDER

REACTIONS (3)
  - HYPERSOMNIA [None]
  - OFF LABEL USE [None]
  - SOMNOLENCE [None]
